FAERS Safety Report 25535566 (Version 1)
Quarter: 2025Q3

REPORT INFORMATION
  Report Type: Spontaneous
  Country: US (occurrence: US)
  Receive Date: 20250709
  Receipt Date: 20250709
  Transmission Date: 20251021
  Serious: Yes (Other)
  Sender: NEUROCRINE BIOSCIENCES
  Company Number: US-NEUROCRINE BIOSCIENCES INC.-2025NBI08727

PATIENT
  Age: 45 Year
  Sex: Female

DRUGS (4)
  1. INGREZZA [Suspect]
     Active Substance: VALBENAZINE DITOSYLATE
     Indication: Tardive dyskinesia
     Route: 048
     Dates: start: 20250527
  2. FLUOXETINE [Concomitant]
     Active Substance: FLUOXETINE HYDROCHLORIDE
  3. DEPAKOTE [Concomitant]
     Active Substance: DIVALPROEX SODIUM
  4. ZIPRASIDONE [Concomitant]
     Active Substance: ZIPRASIDONE

REACTIONS (4)
  - Seizure [Unknown]
  - Psychogenic seizure [Unknown]
  - Abdominal pain upper [Unknown]
  - Tremor [Unknown]

NARRATIVE: CASE EVENT DATE: 20250601
